FAERS Safety Report 17896623 (Version 1)
Quarter: 2020Q2

REPORT INFORMATION
  Report Type: Spontaneous
  Country: JP (occurrence: JP)
  Receive Date: 20200615
  Receipt Date: 20200615
  Transmission Date: 20200714
  Serious: Yes (Hospitalization)
  Sender: FDA-Public Use
  Company Number: JP-SA-2020SA149528

PATIENT

DRUGS (1)
  1. JEVTANA [Suspect]
     Active Substance: CABAZITAXEL
     Indication: PROSTATE CANCER
     Dosage: 20 MG/M2 PER DOSE
     Route: 041

REACTIONS (3)
  - Urinary tract infection [Recovered/Resolved]
  - Malaise [Recovered/Resolved]
  - Neutrophil count decreased [Recovered/Resolved]
